FAERS Safety Report 9422474 (Version 1)
Quarter: 2013Q3

REPORT INFORMATION
  Report Type: Spontaneous
  Country: US (occurrence: None)
  Receive Date: 20130725
  Receipt Date: 20130725
  Transmission Date: 20140515
  Serious: Yes (Other)
  Sender: FDA-Public Use
  Company Number: None

PATIENT
  Age: 71 Year
  Sex: Female
  Weight: 52.16 kg

DRUGS (10)
  1. SMZ/TMP DS 800-160 TAB (GENERIC) [Suspect]
     Indication: SINUSITIS
     Dosage: DS 800-160 20 PILLS 1 TABLET TWICE DAILY MOUTH
     Route: 048
     Dates: start: 20130703, end: 20130703
  2. ESTRADIOL [Concomitant]
  3. PROPRANOLOL [Concomitant]
  4. GABAPENTIN [Concomitant]
  5. ZETIA [Concomitant]
  6. PRIMIDONE [Concomitant]
  7. ACCUFLORA [Concomitant]
  8. CENTRUM SILVER [Concomitant]
  9. HAIR-SKIN-NAILS [Concomitant]
  10. BABY ASPIRIN [Concomitant]

REACTIONS (4)
  - Back pain [None]
  - Arthralgia [None]
  - Pain in extremity [None]
  - Groin pain [None]
